FAERS Safety Report 25231518 (Version 2)
Quarter: 2025Q2

REPORT INFORMATION
  Report Type: Spontaneous
  Country: US (occurrence: US)
  Receive Date: 20250423
  Receipt Date: 20250522
  Transmission Date: 20250717
  Serious: Yes (Other)
  Sender: ELI LILLY AND COMPANY
  Company Number: US-ELI_LILLY_AND_COMPANY-US202504002555

PATIENT
  Age: 64 Year
  Sex: Female

DRUGS (2)
  1. VERZENIO [Suspect]
     Active Substance: ABEMACICLIB
     Indication: Breast cancer female
     Dosage: 1 DOSAGE FORM, BID
     Route: 065
     Dates: start: 20250124
  2. VERZENIO [Suspect]
     Active Substance: ABEMACICLIB
     Dosage: 1 DOSAGE FORM, BID
     Route: 065

REACTIONS (3)
  - Acute lung injury [Not Recovered/Not Resolved]
  - Hypersensitivity [Not Recovered/Not Resolved]
  - Interstitial lung disease [Unknown]
